FAERS Safety Report 9275056 (Version 5)
Quarter: 2013Q2

REPORT INFORMATION
  Report Type: Report from Study
  Country: AU (occurrence: AU)
  Receive Date: 20130507
  Receipt Date: 20130624
  Transmission Date: 20140414
  Serious: Yes (Hospitalization, Other)
  Sender: FDA-Public Use
  Company Number: PHHY2013AU042357

PATIENT
  Age: 44 Year
  Sex: Female
  Weight: 41 kg

DRUGS (2)
  1. ACLASTA [Suspect]
     Indication: OSTEOPOROSIS
     Dosage: 4 MG, UNK
     Route: 042
     Dates: start: 20130426
  2. LEVONORGESTREL W/ETHINYLESTRADIOL [Concomitant]
     Indication: CONTRACEPTION
     Dosage: 120 UG, QD (100UG + 20 UG)
     Route: 048

REACTIONS (6)
  - Photopsia [Recovered/Resolved]
  - Presyncope [Recovered/Resolved]
  - Loss of consciousness [Unknown]
  - Blood pressure decreased [Recovered/Resolved]
  - Drug hypersensitivity [Unknown]
  - Incorrect dose administered [Unknown]
